FAERS Safety Report 4838136-3 (Version None)
Quarter: 2005Q4

REPORT INFORMATION
  Report Type: 
  Country: None (occurrence: None)
  Receive Date: 20051123
  Receipt Date: 20051123
  Transmission Date: 20060501
  Serious: Yes (Hospitalization)
  Sender: FDA-Public Use
  Company Number: None

PATIENT
  Sex: Female

DRUGS (5)
  1. WARFARIN [Suspect]
     Indication: DEEP VEIN THROMBOSIS
     Dosage: 5 MG PO QHS
     Route: 048
  2. CLONIDINE [Concomitant]
  3. CARVEDILOL [Concomitant]
  4. MEGESTROL [Concomitant]
  5. TRIAMTEREN [Concomitant]

REACTIONS (2)
  - MELAENA [None]
  - THROMBOSIS [None]
